FAERS Safety Report 18439130 (Version 2)
Quarter: 2020Q4

REPORT INFORMATION
  Report Type: Spontaneous
  Country: CN (occurrence: CN)
  Receive Date: 20201028
  Receipt Date: 20201125
  Transmission Date: 20210114
  Serious: Yes (Other)
  Sender: FDA-Public Use
  Company Number: CN-GILEAD-2020-0501661

PATIENT
  Age: 29 Year
  Sex: Male

DRUGS (2)
  1. ADEFOVIR DIPIVOXIL. [Suspect]
     Active Substance: ADEFOVIR DIPIVOXIL
     Indication: CHRONIC HEPATITIS B
     Dosage: 10 MG, QD (LOW DOSE)
     Route: 065
  2. LAMIVUDINE. [Concomitant]
     Active Substance: LAMIVUDINE
     Indication: CHRONIC HEPATITIS B
     Dosage: 100 MG, QD

REACTIONS (13)
  - Fanconi syndrome acquired [Unknown]
  - Nephrolithiasis [Unknown]
  - Bone pain [Unknown]
  - Urine output increased [Unknown]
  - Muscular weakness [Unknown]
  - Hypophosphataemic osteomalacia [Unknown]
  - Arthralgia [Unknown]
  - Fatigue [Unknown]
  - Urine abnormality [Unknown]
  - Gait disturbance [Unknown]
  - Dysuria [Unknown]
  - Polyuria [Unknown]
  - Nocturia [Unknown]

NARRATIVE: CASE EVENT DATE: 201701
